FAERS Safety Report 13243849 (Version 1)
Quarter: 2017Q1

REPORT INFORMATION
  Report Type: Spontaneous
  Country: US (occurrence: US)
  Receive Date: 20170216
  Receipt Date: 20170216
  Transmission Date: 20170428
  Serious: Yes (Other)
  Sender: FDA-Public Use
  Company Number: US-BAUSCH-BL-2017-003481

PATIENT
  Sex: Male

DRUGS (2)
  1. PROVENGE [Suspect]
     Active Substance: SIPULEUCEL-T
     Indication: PROSTATE CANCER
     Dosage: SINGLE
     Route: 042
     Dates: start: 20170112, end: 20170112
  2. PROVENGE [Suspect]
     Active Substance: SIPULEUCEL-T
     Dosage: SINGLE
     Route: 042
     Dates: start: 20170126, end: 20170126

REACTIONS (1)
  - Staphylococcal infection [Unknown]

NARRATIVE: CASE EVENT DATE: 2017
